FAERS Safety Report 6183790-X (Version None)
Quarter: 2009Q2

REPORT INFORMATION
  Report Type: 
  Country: None (occurrence: None)
  Receive Date: 20090506
  Receipt Date: 20090506
  Transmission Date: 20091009
  Serious: Yes (Hospitalization)
  Sender: FDA-Public Use
  Company Number: None

PATIENT
  Age: 56 Year
  Sex: Male
  Weight: 201 kg

DRUGS (2)
  1. FENTANYL-100 [Suspect]
     Dosage: 25MCG/QHR MCG OTHER TOP
     Route: 061
     Dates: start: 20090327, end: 20090330
  2. OXYCODONE AND ACETAMINOPHEN [Suspect]
     Dosage: 5/325- 10/650 MG
     Route: 048
     Dates: start: 20090327, end: 20090330

REACTIONS (1)
  - FAECALOMA [None]
